FAERS Safety Report 10133852 (Version 1)
Quarter: 2014Q2

REPORT INFORMATION
  Report Type: Report from Study
  Country: PL (occurrence: PL)
  Receive Date: 20140428
  Receipt Date: 20140428
  Transmission Date: 20141212
  Serious: Yes (Hospitalization, Disabling)
  Sender: FDA-Public Use
  Company Number: PL-ASTRAZENECA-2014SE26725

PATIENT
  Age: 76 Year
  Sex: Female

DRUGS (8)
  1. TICAGRELOR [Suspect]
     Indication: ACUTE CORONARY SYNDROME
     Route: 048
     Dates: start: 20140317
  2. ASPIRIN [Suspect]
     Indication: ACUTE CORONARY SYNDROME
     Route: 048
     Dates: start: 20140317
  3. ASPIRIN [Suspect]
     Indication: ACUTE CORONARY SYNDROME
     Route: 048
  4. STUDY PROCEDURE [Suspect]
  5. ATORVASTATIN [Concomitant]
  6. RAMIPRIL [Concomitant]
  7. BISOPROLOL [Concomitant]
  8. PANTOPRAZOLE [Concomitant]

REACTIONS (1)
  - Ischaemic stroke [Recovered/Resolved with Sequelae]
